FAERS Safety Report 4483605-1 (Version None)
Quarter: 2004Q4

REPORT INFORMATION
  Report Type: 
  Country: None (occurrence: None)
  Receive Date: 20041025
  Receipt Date: 20041025
  Transmission Date: 20050328
  Serious: No
  Sender: FDA-Public Use
  Company Number: None

PATIENT
  Age: 56 Year
  Sex: Female
  Weight: 64.4108 kg

DRUGS (1)
  1. CRESTOR [Suspect]
     Indication: BLOOD CHOLESTEROL INCREASED
     Dosage: 10 MG DAILY ORAL
     Route: 048
     Dates: start: 20040814, end: 20041023

REACTIONS (3)
  - ASTHENIA [None]
  - MALAISE [None]
  - MYALGIA [None]
